FAERS Safety Report 4295262-8 (Version None)
Quarter: 2004Q1

REPORT INFORMATION
  Report Type: 
  Country: None (occurrence: None)
  Receive Date: 20040216
  Receipt Date: 20030506
  Transmission Date: 20041129
  Serious: No
  Sender: FDA-Public Use
  Company Number: US-GLAXOSMITHKLINE-A0407362A

PATIENT
  Age: 4 Year
  Sex: Female

DRUGS (2)
  1. LAMICTAL [Suspect]
     Dosage: 25MG FOUR TIMES PER DAY
     Route: 048
  2. CARBATROL [Concomitant]
     Dosage: 800MG PER DAY
     Route: 065

REACTIONS (1)
  - SKIN DISCOLOURATION [None]
